FAERS Safety Report 6401024-5 (Version None)
Quarter: 2009Q4

REPORT INFORMATION
  Report Type: 
  Country: None (occurrence: None)
  Receive Date: 20091013
  Receipt Date: 20091013
  Transmission Date: 20100525
  Serious: Yes (Death, Hospitalization)
  Sender: FDA-Public Use
  Company Number: None

PATIENT
  Sex: Male
  Weight: 113 kg

DRUGS (43)
  1. CISPLATIN [Suspect]
     Dosage: 120 MG
  2. ETOPOSIDE [Suspect]
     Dosage: 720 MG
  3. MITOTANE [Suspect]
     Dosage: 386 MG
  4. AREPITANT [Concomitant]
  5. BACTRIM [Concomitant]
  6. BISACODYL [Concomitant]
  7. CALCIUM GLUCONATE [Concomitant]
  8. CEFAZOLIN [Concomitant]
  9. CEFTAZIDIME [Concomitant]
  10. CEFTRIAXONE [Concomitant]
  11. CIPROFLOXACIN HYDROCHLORIDE [Concomitant]
  12. DIAZEPAM [Concomitant]
  13. DOCUSATE [Concomitant]
  14. ENOXAPARIN SODIUM [Concomitant]
  15. NEUPOGEN [Concomitant]
  16. SODIUM PHOSPHATES [Concomitant]
  17. FOLIC ACID [Concomitant]
  18. FUROSEMIDE [Concomitant]
  19. GABAPENTIN [Concomitant]
  20. GENTAMICIN [Concomitant]
  21. HYDROCORTISONE [Concomitant]
  22. LACTULOSE [Concomitant]
  23. LEVITRACETAM [Concomitant]
  24. LORAZEPAM [Concomitant]
  25. MAGNESIUM OXIDE [Concomitant]
  26. MANITOL [Concomitant]
  27. MEGNESIUM SULFATE [Concomitant]
  28. METHADONE HYDROCHLORIDE [Concomitant]
  29. METHYLPHENIDATE HCL [Concomitant]
  30. METRYAPONE [Concomitant]
  31. MORPHINE [Concomitant]
  32. MULTI-VITAMIN [Concomitant]
  33. NALBUPHINE [Concomitant]
  34. ONDANSETRON [Concomitant]
  35. PANTOPRAZOLE SODIUM [Concomitant]
  36. PHYTONADIONE [Concomitant]
  37. PIPERACILLIN AND TAZOBACTAM [Concomitant]
  38. POTASSIUM CHLORIDE [Concomitant]
  39. POTASSIUM PHOSPHATES [Concomitant]
  40. POTASSIUM PHOSPHATE-SODIUM PHOSPHATE [Concomitant]
  41. RANITIDINE HYDROCHLORIDE [Concomitant]
  42. SODIUM CHLORIDE [Concomitant]
  43. THIAMINE HCL [Concomitant]

REACTIONS (15)
  - ABASIA [None]
  - ASTHENIA [None]
  - CARDIAC ARREST [None]
  - CEREBRAL THROMBOSIS [None]
  - DEHYDRATION [None]
  - DIARRHOEA [None]
  - DISCOMFORT [None]
  - GRIP STRENGTH DECREASED [None]
  - METASTASES TO MENINGES [None]
  - MUSCULAR WEAKNESS [None]
  - PULSE ABSENT [None]
  - PYREXIA [None]
  - RESPIRATORY ARREST [None]
  - URINARY TRACT INFECTION [None]
  - VOMITING [None]
